FAERS Safety Report 25660206 (Version 1)
Quarter: 2025Q3

REPORT INFORMATION
  Report Type: Spontaneous
  Country: US (occurrence: None)
  Receive Date: 20250807
  Receipt Date: 20250807
  Transmission Date: 20251021
  Serious: Yes (Hospitalization)
  Sender: FDA-CTU
  Company Number: None

PATIENT
  Age: 14 Year
  Sex: Female
  Weight: 61.6 kg

DRUGS (8)
  1. TRIKAFTA [Suspect]
     Active Substance: ELEXACAFTOR\IVACAFTOR\TEZACAFTOR
     Indication: Cystic fibrosis
     Dosage: FREQUENCY : TWICE A DAY;?
     Route: 048
     Dates: start: 20210616
  2. PULMOZYME 1MG/ML INH SOL 30 X 2.5ML [Concomitant]
  3. DEKAS PLUS M/V LIQUID [Concomitant]
  4. DEKAS PLUS M/V LIQUID [Concomitant]
  5. MIRALAX 3350 NF POWDER 119GM (OTC) [Concomitant]
  6. SALINE PACKET REFILLS 100^S [Concomitant]
  7. CREON 36000UNT CAPSULES [Concomitant]
  8. PROTONIX 40MG TABLETS [Concomitant]

REACTIONS (6)
  - Heart rate abnormal [None]
  - Dizziness [None]
  - Hypotension [None]
  - Hemiparaesthesia [None]
  - Paraesthesia [None]
  - Postural orthostatic tachycardia syndrome [None]

NARRATIVE: CASE EVENT DATE: 20250617
